FAERS Safety Report 22632439 (Version 2)
Quarter: 2023Q2

REPORT INFORMATION
  Report Type: Spontaneous
  Country: US (occurrence: US)
  Receive Date: 20230623
  Receipt Date: 20230623
  Transmission Date: 20230722
  Serious: No
  Sender: FDA-Public Use
  Company Number: US-002147023-NVSC2023US142126

PATIENT
  Sex: Male

DRUGS (2)
  1. PROMACTA [Suspect]
     Active Substance: ELTROMBOPAG OLAMINE
     Indication: Dermatitis atopic
     Dosage: 75 MG, QD
     Route: 048
     Dates: start: 202301
  2. PROMACTA [Suspect]
     Active Substance: ELTROMBOPAG OLAMINE
     Indication: Thrombocytopenic purpura

REACTIONS (4)
  - Rash [Unknown]
  - Pruritus [Unknown]
  - Skin exfoliation [Unknown]
  - Product use in unapproved indication [Unknown]
